FAERS Safety Report 16223424 (Version 1)
Quarter: 2019Q2

REPORT INFORMATION
  Report Type: Spontaneous
  Country: DK (occurrence: DK)
  Receive Date: 20190422
  Receipt Date: 20190422
  Transmission Date: 20190711
  Serious: Yes (Life-Threatening, Other)
  Sender: FDA-Public Use
  Company Number: DK-MYLANLABS-2019M1038384

PATIENT
  Age: 70 Year
  Sex: Female

DRUGS (6)
  1. SOLU-MEDROL [Suspect]
     Active Substance: METHYLPREDNISOLONE SODIUM SUCCINATE
     Indication: CHRONIC OBSTRUCTIVE PULMONARY DISEASE
     Dosage: UNK
     Route: 042
     Dates: start: 20190321
  2. ARIXTRA [Suspect]
     Active Substance: FONDAPARINUX SODIUM
     Indication: ACUTE CORONARY SYNDROME
     Dosage: 2.5 MILLIGRAM, QD
     Route: 058
     Dates: start: 20190321, end: 20190322
  3. MAGNYL /00228701/ [Suspect]
     Active Substance: ASPIRIN\MAGNESIUM OXIDE
     Indication: ACUTE CORONARY SYNDROME
     Dosage: 100 MILLIGRAM
     Route: 048
     Dates: start: 20190321, end: 20190322
  4. CIPRAMIL                           /00582602/ [Concomitant]
     Active Substance: CITALOPRAM HYDROBROMIDE
     Dosage: UNK
     Dates: start: 20130515
  5. IBUPROFEN. [Concomitant]
     Active Substance: IBUPROFEN
     Dosage: UNK
     Dates: start: 20140412
  6. BRILIQUE [Suspect]
     Active Substance: TICAGRELOR
     Indication: ACUTE CORONARY SYNDROME
     Dosage: UNK
     Route: 048
     Dates: start: 20190321, end: 20190321

REACTIONS (5)
  - Small intestinal haemorrhage [Recovering/Resolving]
  - Haemoglobin decreased [Unknown]
  - Haemodynamic instability [Unknown]
  - Blood lactic acid increased [Unknown]
  - Rectal haemorrhage [Recovering/Resolving]

NARRATIVE: CASE EVENT DATE: 20190322
